FAERS Safety Report 18659157 (Version 9)
Quarter: 2022Q4

REPORT INFORMATION
  Report Type: Report from Study
  Country: IE (occurrence: IE)
  Receive Date: 20201224
  Receipt Date: 20221219
  Transmission Date: 20230113
  Serious: Yes (Hospitalization, Other)
  Sender: FDA-Public Use
  Company Number: IE-SHIRE-IE202016730

PATIENT
  Age: 53 Year
  Sex: Female

DRUGS (3)
  1. HUMAN IMMUNOGLOBULIN G\HYALURONIDASE RECOMBINANT HUMAN [Suspect]
     Active Substance: HUMAN IMMUNOGLOBULIN G\HYALURONIDASE RECOMBINANT HUMAN
     Indication: Hypogammaglobulinaemia
     Dosage: 20 GRAM, Q4WEEKS
     Route: 058
     Dates: start: 20200505
  2. HUMAN IMMUNOGLOBULIN G\HYALURONIDASE RECOMBINANT HUMAN [Suspect]
     Active Substance: HUMAN IMMUNOGLOBULIN G\HYALURONIDASE RECOMBINANT HUMAN
     Indication: Osteomyelitis
     Dosage: 20 GRAM, Q4WEEKS
     Route: 058
     Dates: start: 20200515
  3. HUMAN IMMUNOGLOBULIN G\HYALURONIDASE RECOMBINANT HUMAN [Suspect]
     Active Substance: HUMAN IMMUNOGLOBULIN G\HYALURONIDASE RECOMBINANT HUMAN
     Dosage: 20 MILLIGRAM
     Route: 058
     Dates: start: 20200515

REACTIONS (13)
  - Lower respiratory tract infection [Not Recovered/Not Resolved]
  - Stem cell transplant [Not Recovered/Not Resolved]
  - Infusion site erythema [Recovering/Resolving]
  - Infusion site swelling [Recovering/Resolving]
  - Syncope [Not Recovered/Not Resolved]
  - Poor venous access [Recovering/Resolving]
  - Product administration error [Unknown]
  - Device alarm issue [Recovered/Resolved]
  - Malaise [Not Recovered/Not Resolved]
  - Adverse drug reaction [Not Recovered/Not Resolved]
  - Pallor [Not Recovered/Not Resolved]
  - Infusion related reaction [Not Recovered/Not Resolved]
  - Product dose omission issue [Unknown]

NARRATIVE: CASE EVENT DATE: 20200515
